FAERS Safety Report 17488759 (Version 1)
Quarter: 2020Q1

REPORT INFORMATION
  Report Type: Spontaneous
  Country: FR (occurrence: FR)
  Receive Date: 20200303
  Receipt Date: 20200303
  Transmission Date: 20200409
  Serious: Yes (Hospitalization)
  Sender: FDA-Public Use
  Company Number: FR-JNJFOC-20200233872

PATIENT
  Age: 56 Year
  Sex: Male
  Weight: 72 kg

DRUGS (4)
  1. LEPTICUR [Suspect]
     Active Substance: TROPATEPINE HYDROCHLORIDE
     Indication: DYSKINESIA
     Route: 048
  2. HALDOL [Suspect]
     Active Substance: HALOPERIDOL
     Indication: MENTAL DISORDER
     Route: 048
  3. TERCIAN [Suspect]
     Active Substance: CYAMEMAZINE
     Indication: MENTAL DISORDER
     Route: 047
  4. CLOPIXOL                           /00876702/ [Suspect]
     Active Substance: ZUCLOPENTHIXOL ACETATE
     Indication: MENTAL DISORDER
     Route: 048

REACTIONS (2)
  - Volvulus [Not Recovered/Not Resolved]
  - Constipation [Not Recovered/Not Resolved]

NARRATIVE: CASE EVENT DATE: 2019
